FAERS Safety Report 21339865 (Version 1)
Quarter: 2022Q3

REPORT INFORMATION
  Report Type: Report from Study
  Country: US (occurrence: US)
  Receive Date: 20220915
  Receipt Date: 20220915
  Transmission Date: 20221026
  Serious: Yes (Hospitalization, Other)
  Sender: FDA-Public Use
  Company Number: US-SEATTLE GENETICS-2022SGN08219

PATIENT
  Age: 63 Year
  Sex: Female

DRUGS (1)
  1. TUCATINIB [Suspect]
     Active Substance: TUCATINIB
     Indication: Breast cancer
     Dosage: 150 MG
     Route: 065

REACTIONS (6)
  - Pyrexia [Unknown]
  - Acute kidney injury [Unknown]
  - Enterocolitis [Unknown]
  - Anaemia [Unknown]
  - Flushing [Unknown]
  - Burning sensation [Unknown]

NARRATIVE: CASE EVENT DATE: 20220826
